FAERS Safety Report 13761012 (Version 2)
Quarter: 2017Q3

REPORT INFORMATION
  Report Type: Spontaneous
  Country: US (occurrence: US)
  Receive Date: 20170717
  Receipt Date: 20170807
  Transmission Date: 20171127
  Serious: Yes (Hospitalization)
  Sender: FDA-Public Use
  Company Number: US-VERTEX PHARMACEUTICALS-2017-003692

PATIENT
  Age: 22 Year
  Sex: Male

DRUGS (3)
  1. ORKAMBI [Suspect]
     Active Substance: IVACAFTOR\LUMACAFTOR
     Indication: CYSTIC FIBROSIS
     Dosage: 2 DF (200-125 MG, EACH), BID
     Route: 048
     Dates: start: 201509
  2. PULMOZYME [Concomitant]
     Active Substance: DORNASE ALFA
  3. CAYSTON [Concomitant]
     Active Substance: AZTREONAM

REACTIONS (4)
  - Fatigue [Recovering/Resolving]
  - Cough [Recovering/Resolving]
  - Forced expiratory volume decreased [Recovering/Resolving]
  - Sputum increased [Recovering/Resolving]

NARRATIVE: CASE EVENT DATE: 20170710
